FAERS Safety Report 7439716-1 (Version None)
Quarter: 2011Q2

REPORT INFORMATION
  Report Type: 
  Country: None (occurrence: None)
  Receive Date: 20110427
  Receipt Date: 20110415
  Transmission Date: 20111010
  Serious: Yes (Life-Threatening, Hospitalization)
  Sender: FDA-Public Use
  Company Number: PHHO2011GB06848

PATIENT
  Sex: Male
  Weight: 99 kg

DRUGS (10)
  1. AMITRIPTYLINE [Concomitant]
     Indication: PAIN
     Dosage: 25 MG, QD
  2. NEBIVOLOL HCL [Concomitant]
     Indication: CARDIAC FAILURE
     Dosage: 7.5 MG, QD
     Dates: start: 20070529
  3. BLINDED ENALAPRIL [Suspect]
     Dosage: NO TREATMENT
  4. BLINDED NO TREATMENT RECEIVED [Suspect]
     Dosage: NO TREATMENT
  5. EPLERENONE [Concomitant]
     Indication: CARDIAC FAILURE
     Dosage: 50 MG, QD
     Dates: start: 20101013
  6. BUMETANIDE [Concomitant]
     Indication: CARDIAC FAILURE
     Dosage: 2 MG, QD
     Dates: start: 20090409
  7. COMPARATOR ENALAPRIL [Suspect]
     Indication: CARDIAC FAILURE
     Dosage: 20 MG, BID
     Route: 048
     Dates: start: 20110401
  8. BLINDED ALISKIREN [Suspect]
     Dosage: NO TREATMENT
  9. AMIODARONE [Concomitant]
     Indication: SINUS ARRHYTHMIA
     Dosage: 200 MG, QD
  10. WARFARIN [Concomitant]
     Indication: SINUS ARRHYTHMIA
     Dosage: 2 MG, QD

REACTIONS (4)
  - LOWER RESPIRATORY TRACT INFECTION [None]
  - BLOOD CREATININE INCREASED [None]
  - BLOOD UREA INCREASED [None]
  - CARDIAC ARREST [None]
